FAERS Safety Report 22219306 (Version 1)
Quarter: 2023Q2

REPORT INFORMATION
  Report Type: Spontaneous
  Country: KR (occurrence: KR)
  Receive Date: 20230417
  Receipt Date: 20230417
  Transmission Date: 20230722
  Serious: Yes (Other)
  Sender: FDA-Public Use
  Company Number: KR-BAYER-2023A046250

PATIENT
  Age: 44 Year
  Sex: Male

DRUGS (5)
  1. SORAFENIB [Suspect]
     Active Substance: SORAFENIB
     Dosage: 400 MG, BID
     Route: 048
  2. REGORAFENIB [Suspect]
     Active Substance: REGORAFENIB
     Dosage: 160 MG, QD ONCE A DAY FOR 3 WEEKS ON AND 1 WEEK OFF
     Route: 048
  3. NIVOLUMAB [Concomitant]
     Active Substance: NIVOLUMAB
     Dosage: 3 MG/KG
  4. NIVOLUMAB [Concomitant]
     Active Substance: NIVOLUMAB
     Dosage: 240 MG EVERY 2 WEEKS
  5. IPILIMUMAB [Concomitant]
     Active Substance: IPILIMUMAB
     Dosage: 1 MG/KG, ADMINISTERED EVERY 3 WEEKS

REACTIONS (3)
  - Metastases to lung [None]
  - Metastases to thorax [None]
  - Metastases to lymph nodes [None]
